FAERS Safety Report 4979628-6 (Version None)
Quarter: 2006Q2

REPORT INFORMATION
  Report Type: 
  Country: None (occurrence: None)
  Receive Date: 20060418
  Receipt Date: 20060331
  Transmission Date: 20061013
  Serious: Yes (Hospitalization, Other)
  Sender: FDA-Public Use
  Company Number: JP_051007995

PATIENT
  Age: 73 Year
  Sex: Female
  Weight: 56 kg

DRUGS (7)
  1. EVISTA [Suspect]
     Indication: OSTEOPOROSIS POSTMENOPAUSAL
     Dosage: 60 MG, DAILY (1/D), ORAL
     Route: 048
     Dates: end: 20050819
  2. LIPITOR [Concomitant]
  3. GLAKAY (MENATETRENONE) CAPSULE [Concomitant]
  4. NITOROL (ISOSORBIDE DINITRATE) CAPSULE [Concomitant]
  5. PERSANTIN (DIPYRIDAMOLE) TABLET [Concomitant]
  6. DIOVAN [Concomitant]
  7. RHYTHMY (RILMAZAFONE) TABLET [Concomitant]

REACTIONS (5)
  - ANTINUCLEAR ANTIBODY INCREASED [None]
  - DEEP VEIN THROMBOSIS [None]
  - ERYTHEMA NODOSUM [None]
  - NO THERAPEUTIC RESPONSE [None]
  - PULMONARY EMBOLISM [None]
